FAERS Safety Report 18336126 (Version 1)
Quarter: 2020Q4

REPORT INFORMATION
  Report Type: Spontaneous
  Country: DE (occurrence: DE)
  Receive Date: 20201001
  Receipt Date: 20201001
  Transmission Date: 20210113
  Serious: Yes (Hospitalization)
  Sender: FDA-Public Use
  Company Number: DE-MYLANLABS-2020M1082313

PATIENT
  Age: 37 Year
  Sex: Female
  Weight: 90 kg

DRUGS (16)
  1. METAMIZOL                          /06276701/ [Concomitant]
     Active Substance: METAMIZOLE
     Dosage: 500 MILLIGRAM (500 MG, 4X, TABLETTEN)
     Route: 048
  2. NATRIUMCHLORID NORIDEM [Concomitant]
     Active Substance: SODIUM CHLORIDE
     Dosage: 1 GRAM (1 G, 2-2-2-0, TABLETTEN)
     Route: 048
  3. TORASEMIDE [Suspect]
     Active Substance: TORSEMIDE
     Indication: PRODUCT USED FOR UNKNOWN INDICATION
     Dosage: 10 MILLIGRAM (10 MG, 2-1-0-0, TABLETTEN)
     Route: 048
  4. SUMATRIPTAN. [Concomitant]
     Active Substance: SUMATRIPTAN
     Dosage: 50 MILLIGRAM (50 MG, 2-0-0-0, TABLETTEN)
     Route: 048
  5. HYDROMORPHONE [Concomitant]
     Active Substance: HYDROMORPHONE
     Dosage: 4 MILLIGRAM, QID (4 MG, 1-1-1-1, RETARD-KAPSELN)
     Route: 048
  6. AMPHO-MORONAL [Concomitant]
     Active Substance: AMPHOTERICIN B
     Dosage: UNK UNK, QID (NK MG, 1-1-1-1, LUTSCHTABLETTEN)
     Route: 048
  7. CLONIDINE. [Suspect]
     Active Substance: CLONIDINE
     Indication: PRODUCT USED FOR UNKNOWN INDICATION
     Dosage: 0.075 MILLIGRAM (0.075 MG, 2-0-2-0, TABLETTEN)
     Route: 048
  8. INSULIN DETEMIR [Concomitant]
     Active Substance: INSULIN DETEMIR
     Dosage: 24 INTERNATIONAL UNIT, BID (24 IE, 1-0-0-1, AMPULLEN)
     Route: 058
  9. PIPAMPERON [Concomitant]
     Active Substance: PIPAMPERONE HYDROCHLORIDE
     Dosage: 40 MILLIGRAM, QD (40 MG, 0-0-0-1, TABLETTEN)
     Route: 048
  10. VENLAFAXIN [Concomitant]
     Active Substance: VENLAFAXINE HYDROCHLORIDE
     Dosage: 150 MILLIGRAM, QD (150 MG, 1-0-0-0, RETARD-KAPSELN)
     Route: 048
  11. INSULIN HUMAN [Concomitant]
     Active Substance: INSULIN HUMAN
     Dosage: 14 INTERNATIONAL UNIT, TID (14 IE, 1-1-1-0, AMPULLEN)
     Route: 058
  12. VENLAFAXIN [Concomitant]
     Active Substance: VENLAFAXINE HYDROCHLORIDE
     Dosage: 37.5 MILLIGRAM (37.5 MG, 2-0-0-0, RETARD-KAPSELN)
     Route: 048
  13. MCP AL [Concomitant]
     Dosage: 10 MILLIGRAM (10 MG, 3X, TABLETTEN)
     Route: 048
  14. ZOPICLON [Concomitant]
     Active Substance: ZOPICLONE
     Dosage: 7.5 MILLIGRAM, QD (7.5 MG, 0-0-0-1, TABLETTEN)
     Route: 048
  15. ROSUVASTATIN. [Concomitant]
     Active Substance: ROSUVASTATIN
     Dosage: 40 MILLIGRAM, QD (40 MG, 0-0-1-0, TABLETTEN)
     Route: 048
  16. LOPERAMID [Concomitant]
     Active Substance: LOPERAMIDE
     Dosage: 2 MILLIGRAM, TID (2 MG, 1-1-1-0, TABLETTEN)
     Route: 048

REACTIONS (3)
  - Suicidal ideation [Unknown]
  - Musculoskeletal pain [Unknown]
  - Hypertension [Unknown]
